FAERS Safety Report 9253128 (Version 1)
Quarter: 2013Q2

REPORT INFORMATION
  Report Type: Report from Study
  Country: US (occurrence: US)
  Receive Date: 20130424
  Receipt Date: 20130424
  Transmission Date: 20140414
  Serious: Yes (Death)
  Sender: FDA-Public Use
  Company Number: US-ACTELION-A-US2013-82146

PATIENT
  Age: 59 Year
  Sex: Female

DRUGS (4)
  1. VELETRI [Suspect]
     Indication: PULMONARY ARTERIAL HYPERTENSION
     Dosage: 15 UNK, UNK
     Route: 042
     Dates: start: 20130305, end: 20130411
  2. ASA [Concomitant]
  3. COUMADIN [Concomitant]
  4. DIURETICS [Concomitant]

REACTIONS (1)
  - Death [Fatal]
